FAERS Safety Report 7261943-7 (Version None)
Quarter: 2011Q1

REPORT INFORMATION
  Report Type: 
  Country: None (occurrence: None)
  Receive Date: 20110130
  Receipt Date: 20101129
  Transmission Date: 20110831
  Serious: Yes (Other)
  Sender: FDA-Public Use
  Company Number: US-ABBOTT-10P-163-0688884-00

PATIENT
  Sex: Male
  Weight: 118.04 kg

DRUGS (8)
  1. TOPROL-XL [Concomitant]
     Indication: HYPERTENSION
  2. COUMADIN [Concomitant]
     Indication: ATRIAL FIBRILLATION
  3. MUSCLE RELAXANTS [Concomitant]
     Indication: PSORIATIC ARTHROPATHY
  4. HUMIRA [Suspect]
     Indication: PSORIATIC ARTHROPATHY
     Route: 058
     Dates: start: 20080301, end: 20100401
  5. HUMIRA [Suspect]
     Route: 058
     Dates: start: 20101108
  6. CARDURA [Concomitant]
     Indication: HYPERTENSION
  7. METHOTREXATE [Concomitant]
     Indication: PSORIATIC ARTHROPATHY
     Route: 048
  8. VICODIN [Concomitant]
     Indication: PRODUCT USED FOR UNKNOWN INDICATION

REACTIONS (5)
  - PROSTATIC SPECIFIC ANTIGEN INCREASED [None]
  - PSORIASIS [None]
  - SKIN CANCER [None]
  - INJECTION SITE HAEMATOMA [None]
  - PROSTATE CANCER [None]
